FAERS Safety Report 5912674-4 (Version None)
Quarter: 2008Q4

REPORT INFORMATION
  Report Type: 
  Country: None (occurrence: None)
  Receive Date: 20081008
  Receipt Date: 20081001
  Transmission Date: 20090506
  Serious: No
  Sender: FDA-Public Use
  Company Number: US-B.I. PHARMACEUTICALS,INC./RIDGEFIELD-2008-BP-14232BP

PATIENT
  Sex: Female

DRUGS (9)
  1. SPIRIVA [Suspect]
     Indication: CHRONIC OBSTRUCTIVE PULMONARY DISEASE
     Dosage: 18MCG
     Route: 055
     Dates: start: 20080811
  2. SPIRIVA [Suspect]
     Indication: EMPHYSEMA
  3. SINGULAIR [Concomitant]
     Indication: CHRONIC OBSTRUCTIVE PULMONARY DISEASE
     Dates: start: 20080811
  4. CHANTIX [Concomitant]
     Indication: SMOKING CESSATION THERAPY
     Dates: start: 20080901, end: 20080903
  5. LEVOTHYROXINE SODIUM [Concomitant]
     Indication: THYROID DISORDER
     Dates: start: 20070801
  6. XANAX [Concomitant]
     Indication: ANXIETY
     Dates: start: 20070801
  7. PROVENTIL [Concomitant]
  8. POTASSIUM CHLORIDE [Concomitant]
  9. LASIX [Concomitant]

REACTIONS (1)
  - WHEEZING [None]
